FAERS Safety Report 9849481 (Version 1)
Quarter: 2014Q1

REPORT INFORMATION
  Report Type: Spontaneous
  Country: US (occurrence: None)
  Receive Date: 20140124
  Receipt Date: 20140124
  Transmission Date: 20141002
  Serious: Yes (Other)
  Sender: FDA-Public Use
  Company Number: None

PATIENT
  Age: 10 Year
  Sex: Male
  Weight: 31.75 kg

DRUGS (2)
  1. HYDROCORTISONE VALERATE [Suspect]
     Indication: ECZEMA
     Route: 061
     Dates: start: 20130109, end: 20130409
  2. MULTIVITAMIN: NATURE^S PLUS ANIMAL PARADE CHILDREN^S CHEWABLE MULTI-VITAMIN + MINERAL SUPPLEMENT [Concomitant]

REACTIONS (2)
  - Discomfort [None]
  - Anxiety [None]
